FAERS Safety Report 4729510-4 (Version None)
Quarter: 2005Q3

REPORT INFORMATION
  Report Type: 
  Country: None (occurrence: None)
  Receive Date: 20050801
  Receipt Date: 20050428
  Transmission Date: 20060218
  Serious: Yes (Hospitalization)
  Sender: FDA-Public Use
  Company Number: US-MERCK-0505USA00230

PATIENT
  Age: 71 Year
  Sex: Female
  Weight: 68 kg

DRUGS (8)
  1. OXYCODONE [Suspect]
     Indication: BACK PAIN
     Route: 048
     Dates: start: 19990101, end: 20020901
  2. OXYCODONE [Suspect]
     Route: 048
     Dates: start: 19980101, end: 20040401
  3. ASPIRIN [Concomitant]
     Indication: CEREBROVASCULAR ACCIDENT PROPHYLAXIS
     Route: 065
     Dates: start: 19900101, end: 20020101
  4. VIOXX [Suspect]
     Indication: BACK PAIN
     Route: 048
     Dates: start: 19990101, end: 20020901
  5. VIOXX [Suspect]
     Route: 048
     Dates: start: 19990101, end: 20020901
  6. COUMADIN [Concomitant]
     Indication: DEEP VEIN THROMBOSIS
     Route: 065
     Dates: start: 19980101
  7. SOMA [Concomitant]
     Indication: BACK PAIN
     Route: 065
     Dates: start: 19960101, end: 20040401
  8. NIACIN [Concomitant]
     Indication: BLOOD CHOLESTEROL INCREASED
     Route: 065
     Dates: start: 19900101, end: 20020101

REACTIONS (12)
  - AORTIC DISSECTION [None]
  - AORTIC VALVE INCOMPETENCE [None]
  - ATRIAL FIBRILLATION [None]
  - BLOOD POTASSIUM DECREASED [None]
  - CANDIDIASIS [None]
  - DEPRESSION [None]
  - EMBOLIC STROKE [None]
  - HEMIANOPIA [None]
  - HYPERTENSION [None]
  - HYPERTHYROIDISM [None]
  - INTESTINAL PERFORATION [None]
  - MYOCARDIAL INFARCTION [None]
